FAERS Safety Report 7915239-8 (Version None)
Quarter: 2011Q4

REPORT INFORMATION
  Report Type: 
  Country: None (occurrence: None)
  Receive Date: 20111115
  Receipt Date: 20111112
  Transmission Date: 20120403
  Serious: Yes (Other)
  Sender: FDA-Public Use
  Company Number: JP-EISAI INC-E2020-09768-SPO-JP

PATIENT
  Age: 84 Year
  Sex: Female

DRUGS (1)
  1. ARICEPT [Suspect]
     Indication: DEMENTIA ALZHEIMER'S TYPE
     Route: 048

REACTIONS (5)
  - DYSPHAGIA [None]
  - DELIRIUM [None]
  - ARRHYTHMIA [None]
  - HALLUCINATION [None]
  - BRUXISM [None]
